FAERS Safety Report 6367141-3 (Version None)
Quarter: 2009Q3

REPORT INFORMATION
  Report Type: 
  Country: None (occurrence: None)
  Receive Date: 20090921
  Receipt Date: 20090911
  Transmission Date: 20100115
  Serious: Yes (Hospitalization, Other)
  Sender: FDA-Public Use
  Company Number: CA-ABBOTT-09P-028-0597028-00

PATIENT
  Sex: Male
  Weight: 43.13 kg

DRUGS (3)
  1. KALETRA [Suspect]
     Indication: HIV INFECTION
     Dosage: 2 TABS OF 200/50 MG  2 TABS OF 200/50 MILLIGRAMS
     Dates: start: 20020101
  2. CHAMPIX [Suspect]
     Indication: EX-TOBACCO USER
  3. TRUVADA [Concomitant]
     Indication: HIV INFECTION

REACTIONS (3)
  - COLON CANCER [None]
  - DEPRESSION [None]
  - MALAISE [None]
